FAERS Safety Report 15337034 (Version 1)
Quarter: 2018Q4

REPORT INFORMATION
  Report Type: Spontaneous
  Country: US (occurrence: US)
  Receive Date: 20180831
  Receipt Date: 20180831
  Transmission Date: 20190204
  Serious: Yes (Hospitalization, Other)
  Sender: FDA-Public Use
  Company Number: US-ALVOGEN-2018-ALVOGEN-097230

PATIENT
  Age: 73 Year
  Sex: Female
  Weight: 93.89 kg

DRUGS (7)
  1. CYMBALTA [Concomitant]
     Active Substance: DULOXETINE HYDROCHLORIDE
     Indication: RESTLESS LEGS SYNDROME
     Dosage: STARTED A YEAR AGO
     Route: 048
  2. BYDUREON [Suspect]
     Active Substance: EXENATIDE
     Indication: TYPE 2 DIABETES MELLITUS
     Route: 058
  3. HYDROCHLOROTHIAZIDE AND LISINOPRIL [Suspect]
     Active Substance: HYDROCHLOROTHIAZIDE\LISINOPRIL
     Indication: HYPERTENSION
     Dosage: 20/12.5
     Route: 048
  4. MACROBID [Concomitant]
     Active Substance: NITROFURANTOIN\NITROFURANTOIN MONOHYDRATE
     Indication: CYSTITIS
     Route: 048
  5. GABAPENTIN. [Concomitant]
     Active Substance: GABAPENTIN
     Indication: PAIN IN EXTREMITY
     Route: 048
  6. OXYBUTIN [Concomitant]
     Active Substance: OXYBUTYNIN
     Indication: POLLAKIURIA
     Dosage: ONCE AND A HALF YEARS AGO
     Route: 048
  7. ROPINIROLE. [Concomitant]
     Active Substance: ROPINIROLE
     Indication: LIMB DISCOMFORT
     Route: 048

REACTIONS (7)
  - Cystitis [Unknown]
  - Kidney infection [Unknown]
  - Pollakiuria [Unknown]
  - Hypoaesthesia oral [Unknown]
  - Blood glucose abnormal [Unknown]
  - Restless legs syndrome [Unknown]
  - Type 2 diabetes mellitus [Unknown]

NARRATIVE: CASE EVENT DATE: 20180827
